FAERS Safety Report 15546543 (Version 3)
Quarter: 2018Q4

REPORT INFORMATION
  Report Type: Report from Study
  Country: US (occurrence: US)
  Receive Date: 20181024
  Receipt Date: 20181121
  Transmission Date: 20190205
  Serious: Yes (Hospitalization)
  Sender: FDA-Public Use
  Company Number: US-ADAMAS PHARMA, LLC-2018ADA02371

PATIENT
  Age: 82 Year
  Sex: Female
  Weight: 76.19 kg

DRUGS (9)
  1. CHLORHEXIDINE GLUCONATE. [Concomitant]
     Active Substance: CHLORHEXIDINE GLUCONATE
  2. FLUTICASONE. [Concomitant]
     Active Substance: FLUTICASONE
  3. RIVASTIGMINE. [Concomitant]
     Active Substance: RIVASTIGMINE
  4. DULOXETINE. [Concomitant]
     Active Substance: DULOXETINE
     Dosage: 30 MG, 2X/DAY
  5. RYTARY [Concomitant]
     Active Substance: CARBIDOPA\LEVODOPA
  6. GOCOVRI [Suspect]
     Active Substance: AMANTADINE
     Indication: DYSKINESIA
     Dosage: 137 MG, 1X/DAY AT BEDTIME
     Route: 048
     Dates: start: 201809, end: 20181014
  7. GOCOVRI [Suspect]
     Active Substance: AMANTADINE
     Dosage: 274 MG, 1X/DAY AT BEDTIME
     Route: 048
     Dates: start: 20181015, end: 20181022
  8. SYNTHROID [Concomitant]
     Active Substance: LEVOTHYROXINE SODIUM
  9. SINEMET [Concomitant]
     Active Substance: CARBIDOPA\LEVODOPA
     Dosage: 6-7 A DAY

REACTIONS (7)
  - Gait disturbance [Recovered/Resolved]
  - Visual impairment [Unknown]
  - Intentional underdose [Recovered/Resolved]
  - Dehydration [Unknown]
  - Dizziness [Recovered/Resolved]
  - Fall [Recovered/Resolved]
  - Balance disorder [Recovered/Resolved]

NARRATIVE: CASE EVENT DATE: 2018
